FAERS Safety Report 21167779 (Version 2)
Quarter: 2022Q3

REPORT INFORMATION
  Report Type: Spontaneous
  Country: US (occurrence: US)
  Receive Date: 20220803
  Receipt Date: 20220804
  Transmission Date: 20221027
  Serious: No
  Sender: FDA-Public Use
  Company Number: US-PFIZER INC-PV202200034853

PATIENT

DRUGS (2)
  1. GABAPENTIN [Interacting]
     Active Substance: GABAPENTIN
     Indication: Migraine
     Dosage: UNK
  2. EXCEDRIN [Interacting]
     Active Substance: ACETAMINOPHEN\ASPIRIN\CAFFEINE
     Indication: Migraine
     Dosage: UNK

REACTIONS (2)
  - Drug interaction [Unknown]
  - Off label use [Unknown]
